FAERS Safety Report 5972949-X (Version None)
Quarter: 2008Q4

REPORT INFORMATION
  Report Type: 
  Country: None (occurrence: None)
  Receive Date: 20081201
  Receipt Date: 20081121
  Transmission Date: 20090506
  Serious: No
  Sender: FDA-Public Use
  Company Number: PHHY2008DK21965

PATIENT
  Sex: Male

DRUGS (2)
  1. RITALIN TAB [Suspect]
     Route: 048
  2. RITALIN [Suspect]

REACTIONS (1)
  - DEPRESSION [None]
